FAERS Safety Report 4519282-0 (Version None)
Quarter: 2004Q4

REPORT INFORMATION
  Report Type: 
  Country: None (occurrence: None)
  Receive Date: 20041201
  Receipt Date: 20041118
  Transmission Date: 20050328
  Serious: Yes (Other)
  Sender: FDA-Public Use
  Company Number: 2004095797

PATIENT
  Sex: Female
  Weight: 106.5953 kg

DRUGS (11)
  1. CELEBREX [Suspect]
     Indication: FIBROMYALGIA
     Dosage: 400 MG (200 MG, 2 IN 1 D), ORAL
     Route: 048
  2. CELEBREX [Suspect]
     Indication: OSTEOARTHRITIS
     Dosage: 400 MG (200 MG, 2 IN 1 D), ORAL
     Route: 048
  3. CELEBREX [Suspect]
     Indication: RHEUMATOID ARTHRITIS
     Dosage: 400 MG (200 MG, 2 IN 1 D), ORAL
     Route: 048
  4. MAXIDEX (BENZALKONIUM CHLORIDE, DEXAMETHASONE, PHENYLMERCURIC NITRATE) [Concomitant]
  5. RABEPRAZOLE SODIUM [Concomitant]
  6. LEVOTHYROXINE SODIUM [Concomitant]
  7. ALPRAMZOLAM (ALPRAZOLAM) [Concomitant]
  8. OXYCODONE HYDROCHLORIDE AND ACETAMINOPHEN [Concomitant]
  9. PREDNISONE [Concomitant]
  10. ATORVASTATIN (ATORVASTATIN) [Concomitant]
  11. POTASSIUM CHLORIDE [Concomitant]

REACTIONS (1)
  - ATRIAL FIBRILLATION [None]
